FAERS Safety Report 15432214 (Version 1)
Quarter: 2018Q3

REPORT INFORMATION
  Report Type: Spontaneous
  Country: LB (occurrence: LB)
  Receive Date: 20180926
  Receipt Date: 20180926
  Transmission Date: 20181010
  Serious: Yes (Other)
  Sender: FDA-Public Use
  Company Number: LB-NOVOPROD-622796

PATIENT
  Age: 40 Year
  Sex: Female

DRUGS (1)
  1. SAXENDA [Suspect]
     Active Substance: LIRAGLUTIDE
     Indication: WEIGHT CONTROL
     Dosage: ONCE DAILY, FOR APPROXIMATELY 2 WEEKS
     Route: 058

REACTIONS (1)
  - Urinary retention [Unknown]
